FAERS Safety Report 8356027-0 (Version None)
Quarter: 2012Q2

REPORT INFORMATION
  Report Type: 
  Country: None (occurrence: None)
  Receive Date: 20120511
  Receipt Date: 20120511
  Transmission Date: 20120825
  Serious: Yes (Life-Threatening, Hospitalization, Disabling, Other)
  Sender: FDA-Public Use
  Company Number: None

PATIENT
  Age: 57 Year
  Sex: Female
  Weight: 58.9676 kg

DRUGS (1)
  1. HUMIRA [Suspect]
     Indication: AUTOIMMUNE DISORDER
     Dosage: 1 SYRINGE WEEKLY TO BI-WEEKL UNK
     Dates: start: 20090915, end: 20100315

REACTIONS (3)
  - CORONARY ARTERY BYPASS [None]
  - NEOPLASM MALIGNANT [None]
  - LIVER OPERATION [None]
